FAERS Safety Report 16996149 (Version 1)
Quarter: 2019Q4

REPORT INFORMATION
  Report Type: Spontaneous
  Country: FR (occurrence: FR)
  Receive Date: 20191105
  Receipt Date: 20191105
  Transmission Date: 20200122
  Serious: Yes (Other)
  Sender: FDA-Public Use
  Company Number: FR-ALNYLAM PHARMACEUTICALS, INC.-ALN-2019-000833

PATIENT
  Age: 68 Year
  Sex: Male

DRUGS (1)
  1. ONPATTRO [Suspect]
     Active Substance: PATISIRAN SODIUM
     Indication: HEREDITARY NEUROPATHIC AMYLOIDOSIS
     Dosage: UNK
     Route: 042

REACTIONS (7)
  - Urine flow decreased [Unknown]
  - Agitation [Unknown]
  - Ill-defined disorder [Unknown]
  - Hypoacusis [Unknown]
  - Blindness [Unknown]
  - Joint stiffness [Unknown]
  - Balance disorder [Unknown]
